FAERS Safety Report 22331768 (Version 11)
Quarter: 2024Q1

REPORT INFORMATION
  Report Type: Report from Study
  Country: US (occurrence: US)
  Receive Date: 20230517
  Receipt Date: 20240110
  Transmission Date: 20240409
  Serious: Yes (Other)
  Sender: FDA-Public Use
  Company Number: US-PFIZER INC-PV202300074496

PATIENT
  Age: 79 Year
  Sex: Female

DRUGS (7)
  1. IBRANCE [Suspect]
     Active Substance: PALBOCICLIB
     Indication: Breast cancer female
     Dosage: 100 MG, CYCLIC (BY MOUTH DAILY FOR 21 DAYS ON AND 7 DAY OFF)
     Route: 048
     Dates: start: 20230421, end: 202305
  2. IBRANCE [Suspect]
     Active Substance: PALBOCICLIB
     Dosage: 100 MG, CYCLIC (DAILY FOR 14 DAYS ON AND 14 DAYS OFF)
     Route: 048
     Dates: start: 20230525
  3. IBRANCE [Suspect]
     Active Substance: PALBOCICLIB
     Dosage: 100 MG, CYCLIC (DAILY FOR 14 DAYS ON AND 14 DAYS OFF)
     Route: 048
     Dates: start: 2023
  4. IBRANCE [Suspect]
     Active Substance: PALBOCICLIB
     Dosage: 100 MG, CYCLIC (DAILY FOR 14 DAYS ON AND 14 DAYS OFF)
     Route: 048
     Dates: start: 2023
  5. IBRANCE [Suspect]
     Active Substance: PALBOCICLIB
     Dosage: 100 MG, CYCLIC (ONCE DAILY FOR 14 DAYS ON AND 14 DAYS OFF)
     Route: 048
     Dates: start: 2023
  6. IBRANCE [Suspect]
     Active Substance: PALBOCICLIB
     Dosage: 100 MG, CYCLIC (BY MOUTH DAILY FOR 14 DAYS ON AND 14 DAYS OFF)
     Route: 048
     Dates: start: 2023
  7. FASLODEX [Concomitant]
     Active Substance: FULVESTRANT
     Dosage: UNK

REACTIONS (7)
  - Thrombosis [Unknown]
  - Anaemia [Not Recovered/Not Resolved]
  - Blood urine present [Unknown]
  - Dyspnoea [Recovered/Resolved]
  - Fatigue [Not Recovered/Not Resolved]
  - Red blood cell count decreased [Not Recovered/Not Resolved]
  - Feeling hot [Not Recovered/Not Resolved]

NARRATIVE: CASE EVENT DATE: 20230101
